FAERS Safety Report 5250190-6 (Version None)
Quarter: 2007Q1

REPORT INFORMATION
  Report Type: 
  Country: None (occurrence: None)
  Receive Date: 20070228
  Receipt Date: 20060403
  Transmission Date: 20070707
  Serious: No
  Sender: FDA-Public Use
  Company Number: US-GLAXOSMITHKLINE-A0594789A

PATIENT
  Age: 7 Year
  Sex: Female

DRUGS (5)
  1. LAMICTAL [Suspect]
     Indication: EPILEPSY
     Dosage: 100MG TWICE PER DAY
     Route: 048
     Dates: start: 20051108, end: 20060401
  2. LEVOTHYROXINE SODIUM [Concomitant]
     Dosage: 37.5MCG PER DAY
     Route: 048
  3. SINGULAIR [Concomitant]
     Dosage: 5MG PER DAY
     Route: 048
  4. GEODON [Concomitant]
     Dosage: 40MG PER DAY
     Route: 048
  5. CELEXA [Concomitant]
     Dosage: 20MG PER DAY
     Route: 048

REACTIONS (1)
  - ECCHYMOSIS [None]
